FAERS Safety Report 11434156 (Version 1)
Quarter: 2015Q3

REPORT INFORMATION
  Report Type: Spontaneous
  Country: US (occurrence: None)
  Receive Date: 20150828
  Receipt Date: 20150828
  Transmission Date: 20151125
  Serious: No
  Sender: FDA-Public Use
  Company Number: None

PATIENT
  Age: 59 Year
  Sex: Female

DRUGS (2)
  1. RIBASPHERE [Suspect]
     Active Substance: RIBAVIRIN
     Indication: HEPATITIS C
     Dosage: BID 24 QD WEEKS
     Route: 048
     Dates: start: 20150603
  2. SOVALDI [Suspect]
     Active Substance: SOFOSBUVIR
     Indication: HEPATITIS C
     Dosage: QD 24 WEEKS
     Route: 048
     Dates: start: 20150603

REACTIONS (2)
  - Anxiety [None]
  - Fatigue [None]

NARRATIVE: CASE EVENT DATE: 20150716
